FAERS Safety Report 4618266-1 (Version None)
Quarter: 2005Q1

REPORT INFORMATION
  Report Type: 
  Country: None (occurrence: None)
  Receive Date: 20050324
  Receipt Date: 20050311
  Transmission Date: 20050727
  Serious: Yes (Hospitalization)
  Sender: FDA-Public Use
  Company Number: MK200503-0160-1

PATIENT
  Age: 1 Day
  Sex: Male

DRUGS (11)
  1. ANAFRANIL CAP [Suspect]
     Dosage: IN UTERO
  2. CELOCURIN [Concomitant]
  3. ETOMIDATE [Concomitant]
  4. FENTANYL CITRATE [Concomitant]
  5. MIDAZOLAM HCL [Concomitant]
  6. NORMAL SALINE [Concomitant]
  7. OXYGEN [Concomitant]
  8. NORSET [Concomitant]
  9. LARGACTIL [Concomitant]
  10. SERESTA [Concomitant]
  11. ALCOHOL [Concomitant]

REACTIONS (8)
  - AGITATION [None]
  - CRYING [None]
  - DRUG EXPOSURE DURING PREGNANCY [None]
  - DRUG SCREEN POSITIVE [None]
  - DRUG WITHDRAWAL SYNDROME NEONATAL [None]
  - FOETAL CARDIAC DISORDER [None]
  - GASTROINTESTINAL DISORDER CONGENITAL [None]
  - HYPOTONIA NEONATAL [None]
